FAERS Safety Report 15807731 (Version 2)
Quarter: 2019Q1

REPORT INFORMATION
  Report Type: Spontaneous
  Country: US (occurrence: US)
  Receive Date: 20190110
  Receipt Date: 20190116
  Transmission Date: 20190417
  Serious: No
  Sender: FDA-Public Use
  Company Number: US-ELI_LILLY_AND_COMPANY-US201901002091

PATIENT
  Sex: Female

DRUGS (1)
  1. HUMALOG [Suspect]
     Active Substance: INSULIN LISPRO
     Indication: PRODUCT USED FOR UNKNOWN INDICATION
     Dosage: UNK UNK, UNKNOWN
     Route: 065

REACTIONS (6)
  - Nasopharyngitis [Recovering/Resolving]
  - Malaise [Unknown]
  - Pyrexia [Recovering/Resolving]
  - Immunodeficiency [Recovering/Resolving]
  - Cough [Recovering/Resolving]
  - Head discomfort [Recovering/Resolving]

NARRATIVE: CASE EVENT DATE: 201812
